FAERS Safety Report 14664618 (Version 1)
Quarter: 2018Q1

REPORT INFORMATION
  Report Type: Spontaneous
  Country: US (occurrence: US)
  Receive Date: 20180319
  Receipt Date: 20180319
  Transmission Date: 20180509
  Serious: Yes (Other)
  Sender: FDA-Public Use
  Company Number: None

PATIENT
  Age: 64 Year
  Sex: Male
  Weight: 84.15 kg

DRUGS (18)
  1. METFORMIN [Concomitant]
     Active Substance: METFORMIN HYDROCHLORIDE
  2. FENTANYL. [Concomitant]
     Active Substance: FENTANYL
  3. CARVEDILOL. [Concomitant]
     Active Substance: CARVEDILOL
  4. GABAPENTIN. [Concomitant]
     Active Substance: GABAPENTIN
  5. ELIQUIS [Concomitant]
     Active Substance: APIXABAN
  6. BUSPIRONE [Concomitant]
     Active Substance: BUSPIRONE HYDROCHLORIDE
  7. PANTOPRAZOLE [Concomitant]
     Active Substance: PANTOPRAZOLE
  8. ESCITALOPRAM [Concomitant]
     Active Substance: ESCITALOPRAM OXALATE
  9. TEMAZEPAM. [Concomitant]
     Active Substance: TEMAZEPAM
  10. SLOW MAGNESIUM/CALCIUM [Concomitant]
  11. PERCOCET [Concomitant]
     Active Substance: ACETAMINOPHEN\OXYCODONE HYDROCHLORIDE
  12. CLOPIDOGREL [Concomitant]
     Active Substance: CLOPIDOGREL BISULFATE
  13. CAPECITABINE. [Suspect]
     Active Substance: CAPECITABINE
     Indication: COLON CANCER
     Route: 048
     Dates: start: 20180209, end: 20180319
  14. SOTALOL AF [Concomitant]
  15. ROSUVASTATIN. [Concomitant]
     Active Substance: ROSUVASTATIN
  16. DIOVAN [Concomitant]
     Active Substance: VALSARTAN
  17. VITAMIN D [Concomitant]
     Active Substance: CHOLECALCIFEROL
  18. OMEPRAZOLE. [Concomitant]
     Active Substance: OMEPRAZOLE

REACTIONS (2)
  - Full blood count decreased [None]
  - Febrile neutropenia [None]
